FAERS Safety Report 20181167 (Version 1)
Quarter: 2021Q4

REPORT INFORMATION
  Report Type: Spontaneous
  Country: PT (occurrence: PT)
  Receive Date: 20211214
  Receipt Date: 20211214
  Transmission Date: 20220303
  Serious: Yes (Other)
  Sender: FDA-Public Use
  Company Number: PT-MYLANLABS-2021M1079994

PATIENT
  Age: 84 Year
  Sex: Male

DRUGS (6)
  1. FLUCONAZOLE [Suspect]
     Active Substance: FLUCONAZOLE
     Dosage: UNK
  2. FUSIDIC ACID [Suspect]
     Active Substance: FUSIDIC ACID
     Indication: Oral disorder
     Dosage: UNK
  3. SUCRALFATE [Suspect]
     Active Substance: SUCRALFATE
     Indication: Oral disorder
     Dosage: UNK
  4. NYSTATIN [Suspect]
     Active Substance: NYSTATIN
     Indication: Oral disorder
     Dosage: UNK
     Route: 061
  5. LIDOCAINE [Suspect]
     Active Substance: LIDOCAINE
     Indication: Oral disorder
     Dosage: UNK
  6. HYDROXYUREA [Suspect]
     Active Substance: HYDROXYUREA
     Indication: Chronic myelomonocytic leukaemia
     Dosage: UNK UNK, DAILY, (UNK (1-1.5 G/DAY)

REACTIONS (1)
  - Superinfection fungal [Unknown]
